FAERS Safety Report 9311794 (Version 1)
Quarter: 2013Q1

REPORT INFORMATION
  Report Type: Spontaneous
  Country: JP (occurrence: None)
  Receive Date: 20130212
  Receipt Date: 20130212
  Transmission Date: 20140127
  Serious: Yes (Hospitalization)
  Sender: FDA-Public Use
  Company Number: TCI2013A00336

PATIENT
  Age: 79 Year
  Sex: Female

DRUGS (6)
  1. NESINA [Suspect]
     Indication: TYPE 2 DIABETES MELLITUS
     Dosage: 25 MG (25 MG, 1 - 2) UNK
     Route: 048
     Dates: end: 20130121
  2. LOXONIN [Suspect]
     Dates: end: 201301
  3. AMARYL (GLIMEPIRIDE) [Concomitant]
  4. METGLUCO (METFORMIN HYDROCHLORIDE) [Concomitant]
  5. WARFARIN (WARFARIN POTASSIUM) [Concomitant]
  6. BETA BLOCKING AGENTS [Concomitant]

REACTIONS (2)
  - Hypoglycaemia [None]
  - Renal failure acute [None]
